FAERS Safety Report 17688860 (Version 4)
Quarter: 2020Q4

REPORT INFORMATION
  Report Type: Report from Study
  Country: US (occurrence: US)
  Receive Date: 20200421
  Receipt Date: 20201030
  Transmission Date: 20210113
  Serious: No
  Sender: FDA-Public Use
  Company Number: NVSC2020US105092

PATIENT
  Sex: Female

DRUGS (3)
  1. AFINITOR DISPERZ [Suspect]
     Active Substance: EVEROLIMUS
     Indication: ANGIOMYOLIPOMA
     Dosage: 5 MG, BID
     Route: 065
  2. AFINITOR DISPERZ [Suspect]
     Active Substance: EVEROLIMUS
     Indication: TUBEROUS SCLEROSIS COMPLEX
     Dosage: 10 MG, QD
     Route: 048
     Dates: start: 20200414
  3. AFINITOR DISPERZ [Suspect]
     Active Substance: EVEROLIMUS
     Indication: SEIZURE

REACTIONS (4)
  - Insomnia [Unknown]
  - Cough [Unknown]
  - Dyspnoea [Unknown]
  - Product dose omission issue [Recovered/Resolved]
